FAERS Safety Report 7729346-6 (Version None)
Quarter: 2011Q3

REPORT INFORMATION
  Report Type: 
  Country: None (occurrence: None)
  Receive Date: 20110906
  Receipt Date: 20110829
  Transmission Date: 20111222
  Serious: Yes (Other)
  Sender: FDA-Public Use
  Company Number: US-ASTELLAS-2011US005394

PATIENT
  Sex: Female

DRUGS (2)
  1. ERLOTINIB HYDROCHLORIDE [Suspect]
     Dosage: 75 MG, QOD
     Route: 048
     Dates: start: 20110114
  2. ERLOTINIB HYDROCHLORIDE [Suspect]
     Indication: LUNG NEOPLASM MALIGNANT
     Dosage: 150 MG, UID/QD
     Route: 048
     Dates: start: 20090813, end: 20110101

REACTIONS (5)
  - RASH MACULAR [None]
  - HEPATIC ENZYME INCREASED [None]
  - EYE IRRITATION [None]
  - STOMATITIS [None]
  - EYE DISORDER [None]
